FAERS Safety Report 18131668 (Version 1)
Quarter: 2020Q3

REPORT INFORMATION
  Report Type: Spontaneous
  Country: CN (occurrence: CN)
  Receive Date: 20200810
  Receipt Date: 20200810
  Transmission Date: 20201103
  Serious: Yes (Hospitalization)
  Sender: FDA-Public Use
  Company Number: CN-ROCHE-2656192

PATIENT
  Age: 61 Year
  Sex: Male
  Weight: 65 kg

DRUGS (8)
  1. CISPLATIN. [Suspect]
     Active Substance: CISPLATIN
     Indication: LUNG NEOPLASM MALIGNANT
     Route: 041
     Dates: start: 20200710, end: 20200712
  2. SODIUM CHLORIDE. [Concomitant]
     Active Substance: SODIUM CHLORIDE
     Dosage: LOT NO. N19122001B, SOLVENT FOR DOCETAXEL INJECTION
     Route: 041
     Dates: start: 20200710, end: 20200710
  3. SODIUM CHLORIDE. [Concomitant]
     Active Substance: SODIUM CHLORIDE
     Dosage: LOT NO. L119031802, SOLVENT FOR BEVACIZUMAB
     Route: 041
     Dates: start: 20200710, end: 20200710
  4. AVASTIN [Suspect]
     Active Substance: BEVACIZUMAB
     Indication: LUNG NEOPLASM MALIGNANT
     Route: 041
     Dates: start: 20200710, end: 20200710
  5. DOCETAXEL. [Suspect]
     Active Substance: DOCETAXEL
     Indication: LUNG NEOPLASM MALIGNANT
     Route: 041
     Dates: start: 20200710, end: 20200710
  6. SODIUM CHLORIDE. [Concomitant]
     Active Substance: SODIUM CHLORIDE
     Dosage: LOT NO. B20041609, SOLVENT FOR CISPLATIN INJECTION
     Route: 041
     Dates: start: 20200710, end: 20200712
  7. TISLELIZUMAB [Suspect]
     Active Substance: TISLELIZUMAB
     Indication: LUNG NEOPLASM MALIGNANT
     Route: 041
     Dates: start: 20200710, end: 20200710
  8. SODIUM CHLORIDE. [Concomitant]
     Active Substance: SODIUM CHLORIDE
     Dosage: LOT NO. L119031802, SOLVENT FOR TISLELIZUMAB INJECTION
     Route: 041
     Dates: start: 20200710, end: 20200710

REACTIONS (5)
  - Oropharyngeal pain [Recovering/Resolving]
  - Insomnia [Recovering/Resolving]
  - Myalgia [Unknown]
  - Cytopenia [Recovering/Resolving]
  - Decreased appetite [Recovering/Resolving]

NARRATIVE: CASE EVENT DATE: 20200715
